FAERS Safety Report 9525528 (Version 1)
Quarter: 2013Q3

REPORT INFORMATION
  Report Type: Spontaneous
  Country: US (occurrence: US)
  Receive Date: 20130916
  Receipt Date: 20130916
  Transmission Date: 20140515
  Serious: No
  Sender: FDA-Public Use
  Company Number: US-ROXANE LABORATORIES, INC.-2013-RO-01530RO

PATIENT
  Age: 62 Year
  Sex: Female

DRUGS (3)
  1. TINIDAZOLE [Suspect]
     Indication: BACTERIAL INFECTION
  2. VIIBRYD [Suspect]
     Dosage: 10 MG
     Route: 048
     Dates: start: 20130829, end: 20130903
  3. FLONASE [Concomitant]
     Indication: SEASONAL ALLERGY

REACTIONS (2)
  - Diarrhoea [Not Recovered/Not Resolved]
  - Headache [Not Recovered/Not Resolved]
